FAERS Safety Report 7578807-1 (Version None)
Quarter: 2011Q2

REPORT INFORMATION
  Report Type: 
  Country: None (occurrence: None)
  Receive Date: 20110628
  Receipt Date: 20110615
  Transmission Date: 20111010
  Serious: Yes (Hospitalization)
  Sender: FDA-Public Use
  Company Number: HK-MYLANLABS-2011S1012763

PATIENT
  Age: 9 Decade
  Sex: Female

DRUGS (3)
  1. SIMVASTATIN [Interacting]
     Indication: TYPE IIA HYPERLIPIDAEMIA
     Dosage: 40MG DAILY
     Route: 065
  2. NICERGOLINE [Concomitant]
     Indication: VASCULAR DEMENTIA
     Route: 065
  3. DILTIAZEM [Suspect]
     Indication: HYPERTENSION
     Route: 065

REACTIONS (2)
  - MYOPATHY [None]
  - DRUG INTERACTION [None]
